FAERS Safety Report 23192422 (Version 1)
Quarter: 2023Q4

REPORT INFORMATION
  Report Type: Spontaneous
  Country: US (occurrence: US)
  Receive Date: 20231116
  Receipt Date: 20231116
  Transmission Date: 20240109
  Serious: No
  Sender: FDA-Public Use
  Company Number: US-Teikoku Pharma USA-TPU2023-00333

PATIENT
  Age: 65 Year
  Sex: Female

DRUGS (3)
  1. LIDODERM [Suspect]
     Active Substance: LIDOCAINE
     Indication: Ehlers-Danlos syndrome
     Dosage: APPLYING UP TO THREE PATCHES, DESCRIBED AS ^DEPENDS ON WHAT HAS BEEN DISLOCATED^, TO THE LOWER BACK,
     Route: 061
     Dates: start: 2017
  2. LIDOCAINE PATCH [Suspect]
     Active Substance: LIDOCAINE
     Indication: Ehlers-Danlos syndrome
  3. BUTRANS [Concomitant]
     Active Substance: BUPRENORPHINE

REACTIONS (2)
  - Product dose omission issue [Unknown]
  - Application site rash [Unknown]
